FAERS Safety Report 10056738 (Version 3)
Quarter: 2014Q3

REPORT INFORMATION
  Report Type: Spontaneous
  Country: US (occurrence: US)
  Receive Date: 20140403
  Receipt Date: 20140918
  Transmission Date: 20150326
  Serious: No
  Sender: FDA-Public Use
  Company Number: US-009507513-1404USA000768

PATIENT
  Age: 86 Year
  Sex: Female

DRUGS (3)
  1. CLARITIN REDITABS [Suspect]
     Active Substance: LORATADINE
     Indication: LACRIMATION INCREASED
     Dosage: 10 MG, QD
     Route: 048
     Dates: start: 20140305
  2. CLARITIN REDITABS [Suspect]
     Active Substance: LORATADINE
     Indication: RHINORRHOEA
  3. CLARITIN REDITABS [Suspect]
     Active Substance: LORATADINE
     Indication: HYPERSENSITIVITY

REACTIONS (3)
  - Inappropriate schedule of drug administration [Unknown]
  - Overdose [Unknown]
  - Drug ineffective [Unknown]

NARRATIVE: CASE EVENT DATE: 2014
